FAERS Safety Report 7481643-8 (Version None)
Quarter: 2011Q2

REPORT INFORMATION
  Report Type: 
  Country: None (occurrence: None)
  Receive Date: 20110516
  Receipt Date: 20110503
  Transmission Date: 20111010
  Serious: Yes (Hospitalization)
  Sender: FDA-Public Use
  Company Number: US-ELI_LILLY_AND_COMPANY-US201105002132

PATIENT
  Age: 73 Year
  Sex: Female

DRUGS (2)
  1. ZYPREXA [Suspect]
     Dosage: 5 MG, DAILY (1/D)
  2. HALOPERIDOL DECANOATE [Concomitant]

REACTIONS (2)
  - CAMPTOCORMIA [None]
  - BLOOD CREATINE PHOSPHOKINASE INCREASED [None]
